FAERS Safety Report 6779506-6 (Version None)
Quarter: 2010Q2

REPORT INFORMATION
  Report Type: 
  Country: None (occurrence: None)
  Receive Date: 20100618
  Receipt Date: 20100611
  Transmission Date: 20101027
  Serious: Yes (Hospitalization)
  Sender: FDA-Public Use
  Company Number: TR-ELI_LILLY_AND_COMPANY-TR201006003519

PATIENT
  Sex: Female

DRUGS (2)
  1. HUMULIN 70/30 [Suspect]
     Indication: GESTATIONAL DIABETES
     Dosage: 12 U, EACH MORNING
     Route: 058
     Dates: start: 20100201, end: 20100609
  2. HUMULIN 70/30 [Suspect]
     Dosage: 6 U, EACH EVENING
     Route: 058
     Dates: start: 20100201, end: 20100609

REACTIONS (2)
  - DRUG EXPOSURE DURING PREGNANCY [None]
  - PUERPERAL PYREXIA [None]
